FAERS Safety Report 4292457-4 (Version None)
Quarter: 2004Q1

REPORT INFORMATION
  Report Type: 
  Country: None (occurrence: None)
  Receive Date: 20040126
  Receipt Date: 20031112
  Transmission Date: 20041129
  Serious: No
  Sender: FDA-Public Use
  Company Number: USA031152470

PATIENT
  Age: 79 Year
  Sex: Male

DRUGS (6)
  1. FORTEO [Suspect]
     Indication: OSTEOPOROSIS
     Dosage: 20 UG/ AT BEDTIME
     Dates: start: 20030801
  2. CALCIUM CITRATE [Concomitant]
  3. ULTRAM [Concomitant]
  4. PEPCID [Concomitant]
  5. TOPROL-XL [Concomitant]
  6. DOLOBID [Concomitant]

REACTIONS (4)
  - DYSPEPSIA [None]
  - NAUSEA [None]
  - RETCHING [None]
  - VOMITING [None]
